FAERS Safety Report 22308627 (Version 1)
Quarter: 2023Q2

REPORT INFORMATION
  Report Type: Spontaneous
  Country: US (occurrence: None)
  Receive Date: 20230511
  Receipt Date: 20230511
  Transmission Date: 20230721
  Serious: Yes (Other)
  Sender: FDA-Public Use
  Company Number: US-ROCHE-3263142

PATIENT
  Sex: Female

DRUGS (1)
  1. OCREVUS [Suspect]
     Active Substance: OCRELIZUMAB
     Indication: Multiple sclerosis
     Dosage: ON 18/AUG/2022, SHE RECEIVED MOST RECENT DOSE OF OCREVUS WAS 600
     Route: 042

REACTIONS (1)
  - Maternal exposure before pregnancy [Unknown]
